FAERS Safety Report 9829088 (Version 2)
Quarter: 2014Q1

REPORT INFORMATION
  Report Type: Spontaneous
  Country: JP (occurrence: JP)
  Receive Date: 20140119
  Receipt Date: 20140121
  Transmission Date: 20141002
  Serious: Yes (Other)
  Sender: FDA-Public Use
  Company Number: JP-009507513-1401JPN004397

PATIENT
  Age: 56 Year
  Sex: Male

DRUGS (5)
  1. DIAZOXIDE CAPSULES 25 MG ^MSD^ [Suspect]
     Indication: HYPOGLYCAEMIA
     Dosage: 50 MG, TID
     Route: 048
     Dates: start: 20131108, end: 20131127
  2. DAI-KENCHU-TO [Suspect]
     Dosage: UNK
     Route: 048
  3. BESACOLIN [Suspect]
     Dosage: UNK
     Route: 048
  4. HARNAL [Suspect]
     Dosage: UNK
  5. MASHININ-GAN [Suspect]
     Dosage: UNK

REACTIONS (1)
  - Pancytopenia [Recovering/Resolving]
